FAERS Safety Report 21597374 (Version 1)
Quarter: 2022Q4

REPORT INFORMATION
  Report Type: Spontaneous
  Country: US (occurrence: None)
  Receive Date: 20221114
  Receipt Date: 20221114
  Transmission Date: 20230112
  Serious: No
  Sender: FDA-Public Use
  Company Number: None

PATIENT
  Age: 78 Year
  Sex: Male
  Weight: 74.25 kg

DRUGS (7)
  1. EPOGEN [Suspect]
     Active Substance: ERYTHROPOIETIN
     Indication: Anaemia
     Dosage: OTHER FREQUENCY : THREE TIMES WEEKLY;?
     Route: 058
     Dates: start: 20220926, end: 20221111
  2. ATORVASTATIN [Concomitant]
     Active Substance: ATORVASTATIN
     Dates: start: 20220913
  3. CARVEDILOL [Concomitant]
     Active Substance: CARVEDILOL
     Dates: start: 20220913
  4. DOFETILIDE [Concomitant]
     Active Substance: DOFETILIDE
     Dates: start: 20220913
  5. ELIQUIS [Concomitant]
     Active Substance: APIXABAN
     Dates: start: 20220913
  6. ENTRESTO [Concomitant]
     Active Substance: SACUBITRIL\VALSARTAN
     Dates: start: 20220913
  7. LORAZEPAM [Concomitant]
     Active Substance: LORAZEPAM
     Dates: start: 20220913

REACTIONS (2)
  - Fatigue [None]
  - Feeling abnormal [None]

NARRATIVE: CASE EVENT DATE: 20221111
